FAERS Safety Report 9543264 (Version 1)
Quarter: 2013Q2

REPORT INFORMATION
  Report Type: Spontaneous
  Country: US (occurrence: None)
  Receive Date: 20130524
  Receipt Date: 20130524
  Transmission Date: 20140414
  Serious: Yes (Other)
  Sender: FDA-Public Use
  Company Number: PHEH2013US000445

PATIENT
  Age: 48 Year
  Sex: Male

DRUGS (2)
  1. GILENYA (FINGOLIMOD) CAPSULES, 0.5 MG [Suspect]
     Indication: MULTIPLE SCLEROSIS
     Route: 048
     Dates: start: 20121219
  2. DETROL (TOLTERODINE L-TARTRATE) [Concomitant]

REACTIONS (2)
  - Heart rate decreased [None]
  - Electrocardiogram abnormal [None]
